FAERS Safety Report 25240690 (Version 2)
Quarter: 2025Q2

REPORT INFORMATION
  Report Type: Spontaneous
  Country: US (occurrence: US)
  Receive Date: 20250425
  Receipt Date: 20250521
  Transmission Date: 20250717
  Serious: No
  Sender: NOVARTIS
  Company Number: US-002147023-NVSC2025US066949

PATIENT
  Sex: Male

DRUGS (1)
  1. NETSPOT [Suspect]
     Active Substance: GALLIUM OXODOTREOTIDE GA-68
     Indication: Neuroendocrine tumour
     Route: 065

REACTIONS (1)
  - Investigation abnormal [Unknown]

NARRATIVE: CASE EVENT DATE: 20250404
